FAERS Safety Report 18485029 (Version 1)
Quarter: 2020Q4

REPORT INFORMATION
  Report Type: Spontaneous
  Country: US (occurrence: US)
  Receive Date: 20201109
  Receipt Date: 20201109
  Transmission Date: 20210114
  Serious: Yes (Hospitalization)
  Sender: FDA-Public Use
  Company Number: None

PATIENT
  Age: 50 Year
  Sex: Female
  Weight: 102.1 kg

DRUGS (3)
  1. ALIMTA [Suspect]
     Active Substance: PEMETREXED DISODIUM
     Dates: end: 20201019
  2. ONDANSETRON [Concomitant]
     Active Substance: ONDANSETRON
  3. CISPLATIN. [Suspect]
     Active Substance: CISPLATIN
     Dates: end: 20201019

REACTIONS (5)
  - Muscle tightness [None]
  - Neck pain [None]
  - Sleep apnoea syndrome [None]
  - Headache [None]
  - Condition aggravated [None]

NARRATIVE: CASE EVENT DATE: 20201023
